FAERS Safety Report 7586619-8 (Version None)
Quarter: 2011Q3

REPORT INFORMATION
  Report Type: 
  Country: None (occurrence: None)
  Receive Date: 20110701
  Receipt Date: 20110624
  Transmission Date: 20111222
  Serious: Yes (Death, Other)
  Sender: FDA-Public Use
  Company Number: CO-CUBIST-2010S1001758

PATIENT
  Age: 55 Year
  Sex: Female
  Weight: 58 kg

DRUGS (3)
  1. CUBICIN [Suspect]
     Route: 042
     Dates: start: 20100908, end: 20100909
  2. MEROPENEM [Concomitant]
     Indication: ABDOMINAL INFECTION
     Dosage: DOSE UNIT:1
     Route: 042
     Dates: start: 20100908
  3. CUBICIN [Suspect]
     Indication: ABDOMINAL INFECTION
     Route: 042
     Dates: start: 20100908, end: 20100909

REACTIONS (2)
  - TRANSPLANT FAILURE [None]
  - MULTI-ORGAN FAILURE [None]
